FAERS Safety Report 18490320 (Version 1)
Quarter: 2020Q4

REPORT INFORMATION
  Report Type: Spontaneous
  Country: BG (occurrence: BG)
  Receive Date: 20201111
  Receipt Date: 20201111
  Transmission Date: 20210114
  Serious: Yes (Hospitalization, Other)
  Sender: FDA-Public Use
  Company Number: BG-ASTRAZENECA-2020SF45649

PATIENT
  Age: 53 Year
  Sex: Male

DRUGS (24)
  1. SIMVASTATIN. [Concomitant]
     Active Substance: SIMVASTATIN
     Dosage: IN THE EVENING
  2. BISOPROLOL [Concomitant]
     Active Substance: BISOPROLOL
  3. IBABRADINE [Concomitant]
  4. SIMVASTATIN. [Concomitant]
     Active Substance: SIMVASTATIN
     Dosage: IN THE EVENING
  5. ASPART [Concomitant]
     Dosage: 0-10-0 IU
  6. ASPART [Concomitant]
     Dosage: 0-10-0 IU
  7. FURANTRIL [Concomitant]
     Active Substance: FUROSEMIDE
  8. FURANTRIL [Concomitant]
     Active Substance: FUROSEMIDE
  9. L-THYROXIN [Concomitant]
     Active Substance: LEVOTHYROXINE SODIUM
  10. LISINOPRIL/AMLODIPINE [Concomitant]
  11. CONCOR [Concomitant]
     Active Substance: BISOPROLOL FUMARATE
     Dosage: HALF TABLET IN THE MORNING
  12. FORXIGA [Suspect]
     Active Substance: DAPAGLIFLOZIN
     Indication: ILL-DEFINED DISORDER
     Dosage: 10.0MG UNKNOWN
     Route: 048
  13. DEGLUDEC/LIRAGLUTID [Concomitant]
     Dosage: 40 IU/22H
  14. MOLSIDOMINE [Concomitant]
     Active Substance: MOLSIDOMINE
  15. ATORVASTATIN [Concomitant]
     Active Substance: ATORVASTATIN
  16. DAPAGLIFLOZIN. [Concomitant]
     Active Substance: DAPAGLIFLOZIN
  17. ADENURIC [Concomitant]
     Active Substance: FEBUXOSTAT
     Dosage: HALF TABLET DAILY
  18. AMLODIPINE [Concomitant]
     Active Substance: AMLODIPINE BESYLATE
  19. PHYSIOTENS [Concomitant]
     Active Substance: MOXONIDINE
     Dosage: 2X0,2MG
  20. TORASEMIDE [Concomitant]
     Active Substance: TORSEMIDE
     Dosage: IN THE MORNING
  21. DEGLUDEC/LIRAGLUTID [Concomitant]
     Dosage: 40 IU/22H
  22. IVABRADINE [Concomitant]
     Active Substance: IVABRADINE
     Dosage: 2X 75
  23. ASPIRIN. [Concomitant]
     Active Substance: ASPIRIN
     Dosage: IN THE EVENING
  24. FORXIGA [Suspect]
     Active Substance: DAPAGLIFLOZIN
     Indication: TYPE 2 DIABETES MELLITUS
     Dosage: 10.0MG UNKNOWN
     Route: 048

REACTIONS (2)
  - Hypertensive nephropathy [Not Recovered/Not Resolved]
  - Diabetic nephropathy [Not Recovered/Not Resolved]
